FAERS Safety Report 14819908 (Version 1)
Quarter: 2018Q2

REPORT INFORMATION
  Report Type: Spontaneous
  Country: FI (occurrence: FI)
  Receive Date: 20180427
  Receipt Date: 20180427
  Transmission Date: 20180711
  Serious: Yes (Other)
  Sender: FDA-Public Use
  Company Number: FI-JNJFOC-20180422481

PATIENT
  Age: 28 Year
  Sex: Male

DRUGS (1)
  1. XEPLION [Suspect]
     Active Substance: PALIPERIDONE PALMITATE
     Indication: PSYCHOTIC DISORDER
     Route: 030
     Dates: start: 2018

REACTIONS (7)
  - Suicidal ideation [Unknown]
  - Visual impairment [Unknown]
  - Pruritus generalised [Unknown]
  - Feeling abnormal [Unknown]
  - Refusal of treatment by patient [Unknown]
  - Anxiety [Unknown]
  - Hypermetabolism [Unknown]

NARRATIVE: CASE EVENT DATE: 2018
